FAERS Safety Report 12809457 (Version 1)
Quarter: 2016Q4

REPORT INFORMATION
  Report Type: Spontaneous
  Country: US (occurrence: US)
  Receive Date: 20161005
  Receipt Date: 20161005
  Transmission Date: 20170207
  Serious: No
  Sender: FDA-Public Use
  Company Number: US-TAIHO ONCOLOGY INC-EU-2016-02072

PATIENT
  Age: 72 Year
  Sex: Female

DRUGS (15)
  1. LONSURF [Suspect]
     Active Substance: TIPIRACIL HYDROCHLORIDE\TRIFLURIDINE
     Indication: COLON CANCER
     Route: 048
     Dates: start: 20160713, end: 20160922
  2. OXYCODONE [Concomitant]
     Active Substance: OXYCODONE
     Dosage: NI
  3. LOPRESSOR [Concomitant]
     Active Substance: METOPROLOL TARTRATE
     Dosage: NI
  4. SIMVASTATIN. [Concomitant]
     Active Substance: SIMVASTATIN
     Dosage: NI
  5. MORPHINE SULFATE. [Concomitant]
     Active Substance: MORPHINE SULFATE
     Dosage: NI
  6. COMPAZINE [Concomitant]
     Active Substance: PROCHLORPERAZINE MALEATE
     Dosage: NI
  7. LOPERAMIDE [Concomitant]
     Active Substance: LOPERAMIDE
     Dosage: NI
  8. PROMETHAZINE [Concomitant]
     Active Substance: PROMETHAZINE\PROMETHAZINE HYDROCHLORIDE
     Dosage: NI
  9. LORAZEPAM. [Concomitant]
     Active Substance: LORAZEPAM
     Dosage: NI
  10. MIRALAX [Concomitant]
     Active Substance: POLYETHYLENE GLYCOL 3350
     Dosage: NI
  11. BENADRYL [Concomitant]
     Active Substance: DIPHENHYDRAMINE HYDROCHLORIDE
     Dosage: NI
  12. CALCIUM CITRATE [Concomitant]
     Active Substance: CALCIUM CITRATE
     Dosage: NI
  13. GABAPENTIN. [Concomitant]
     Active Substance: GABAPENTIN
     Dosage: NI
  14. LISINOPRIL. [Concomitant]
     Active Substance: LISINOPRIL
     Dosage: NI
  15. NEXIUM [Concomitant]
     Active Substance: ESOMEPRAZOLE MAGNESIUM
     Dosage: NI

REACTIONS (2)
  - Disease progression [Unknown]
  - Nausea [Not Recovered/Not Resolved]

NARRATIVE: CASE EVENT DATE: 201608
